FAERS Safety Report 7989919-2 (Version None)
Quarter: 2011Q4

REPORT INFORMATION
  Report Type: 
  Country: None (occurrence: None)
  Receive Date: 20111219
  Receipt Date: 20110502
  Transmission Date: 20120403
  Serious: No
  Sender: FDA-Public Use
  Company Number: US-ASTRAZENECA-2011SE25335

PATIENT
  Age: 60 Year
  Sex: Female
  Weight: 79.4 kg

DRUGS (7)
  1. CRESTOR [Suspect]
     Route: 048
     Dates: start: 20110201
  2. PLAVIX [Suspect]
     Route: 048
     Dates: start: 20091130
  3. GLUCOPHAGE [Concomitant]
  4. DIOVAN HCT [Concomitant]
  5. ASPIRIN [Concomitant]
  6. METOPROLOL TARTRATE [Concomitant]
  7. SIMVASTATIN [Concomitant]

REACTIONS (9)
  - HAEMATOCRIT DECREASED [None]
  - DYSPEPSIA [None]
  - CONTUSION [None]
  - ERUCTATION [None]
  - ANAEMIA VITAMIN B12 DEFICIENCY [None]
  - RED CELL DISTRIBUTION WIDTH INCREASED [None]
  - HELICOBACTER INFECTION [None]
  - MALAISE [None]
  - GASTRITIS [None]
